FAERS Safety Report 12336735 (Version 1)
Quarter: 2016Q2

REPORT INFORMATION
  Report Type: Other
  Country: GB (occurrence: GB)
  Receive Date: 20160505
  Receipt Date: 20160505
  Transmission Date: 20160815
  Serious: Yes (Other)
  Sender: FDA-Public Use
  Company Number: GB-CIPLA LTD.-2016GB04631

PATIENT

DRUGS (2)
  1. DONEPEZIL. [Suspect]
     Active Substance: DONEPEZIL
     Dosage: 10 MG, 1 TOTAL
     Route: 048
     Dates: end: 20160311
  2. DONEPEZIL. [Suspect]
     Active Substance: DONEPEZIL
     Indication: DEMENTIA WITH LEWY BODIES
     Dosage: 5 MG
     Route: 048
     Dates: start: 20160225

REACTIONS (4)
  - Aggression [Unknown]
  - Migraine [Unknown]
  - Vomiting [Unknown]
  - Thirst [Unknown]
